FAERS Safety Report 6161338-3 (Version None)
Quarter: 2009Q2

REPORT INFORMATION
  Report Type: 
  Country: None (occurrence: None)
  Receive Date: 20090417
  Receipt Date: 20090331
  Transmission Date: 20091009
  Serious: Yes (Death, Hospitalization)
  Sender: FDA-Public Use
  Company Number: B0569383A

PATIENT
  Sex: Male

DRUGS (5)
  1. NELARABINE (FORMULATION UNKNOWN) (GENERIC) (NELARABINE) [Suspect]
     Indication: NON-HODGKIN'S LYMPHOMA
  2. METFORMIN HYDROCHLORIDE [Concomitant]
  3. CYCLOPHOSPHAMIDE [Concomitant]
  4. DOXORUBICIN HCL [Concomitant]
  5. DEXAMETHASONE [Concomitant]

REACTIONS (8)
  - DIFFERENTIAL WHITE BLOOD CELL COUNT ABNORMAL [None]
  - LUNG DISORDER [None]
  - LUNG INFILTRATION [None]
  - LYMPHOPROLIFERATIVE DISORDER [None]
  - MONOCYTE MORPHOLOGY ABNORMAL [None]
  - PLEURAL EFFUSION [None]
  - RESPIRATORY DISTRESS [None]
  - WHITE BLOOD CELL COUNT INCREASED [None]
